FAERS Safety Report 16578186 (Version 6)
Quarter: 2020Q3

REPORT INFORMATION
  Report Type: Spontaneous
  Country: US (occurrence: US)
  Receive Date: 20190716
  Receipt Date: 20200929
  Transmission Date: 20201102
  Serious: No
  Sender: FDA-Public Use
  Company Number: US-PFIZER INC-2019301386

PATIENT
  Age: 69 Year
  Sex: Female
  Weight: 54.43 kg

DRUGS (19)
  1. SOMA [Concomitant]
     Active Substance: CARISOPRODOL
     Dosage: UNK
     Dates: start: 200702, end: 20190826
  2. TIZANIDINE. [Concomitant]
     Active Substance: TIZANIDINE
     Indication: MUSCLE RELAXANT THERAPY
     Dosage: 4 MG, 1X/DAY (4MG. USUALLY JUST TAKES ONCE A DAY OR MORE IF NEEDED)
     Dates: start: 20190827
  3. PROPRANOLOL [Concomitant]
     Active Substance: PROPRANOLOL HYDROCHLORIDE
     Dosage: 10 MG, UNK
  4. LYRICA [Suspect]
     Active Substance: PREGABALIN
     Indication: FIBROMYALGIA
     Dosage: 25 MG, AS NEEDED (AT BEDTIME)
  5. MONTELUKAST [Concomitant]
     Active Substance: MONTELUKAST SODIUM
     Dosage: 10 MG, UNK
  6. VIACTIV [CALCIUM] [Concomitant]
     Active Substance: CALCIUM
     Dosage: UNK
  7. LYRICA [Suspect]
     Active Substance: PREGABALIN
     Indication: ARTHRALGIA
     Dosage: UNK (AS NEEDED IT DURING THE DAY)
  8. SYNTHROID [Concomitant]
     Active Substance: LEVOTHYROXINE SODIUM
     Dosage: 5 MG, UNK
  9. LYRICA [Suspect]
     Active Substance: PREGABALIN
     Indication: ARNOLD-CHIARI MALFORMATION
     Dosage: 25 MG, 2X/DAY
     Route: 048
     Dates: start: 2006
  10. LYRICA [Suspect]
     Active Substance: PREGABALIN
     Dosage: 125 MG, UNK (SHE UPS IT AS NEEDED DURING THE DAY AND TAKES 2 AT NIGHT)
  11. LYRICA [Suspect]
     Active Substance: PREGABALIN
     Dosage: 75 MG, 2X/DAY
     Dates: start: 20190723
  12. GABAPENTIN. [Concomitant]
     Active Substance: GABAPENTIN
     Dosage: UNK
     Dates: start: 2010
  13. AMITRIPTYLINE [Concomitant]
     Active Substance: AMITRIPTYLINE
     Dosage: 10 MG, UNK
     Dates: start: 2007
  14. SYNTHROID [Concomitant]
     Active Substance: LEVOTHYROXINE SODIUM
     Dosage: 1 UG, 1X/DAY
  15. LYRICA [Suspect]
     Active Substance: PREGABALIN
     Dosage: 75 MG, 2X/DAY (75 MG. ONE CAPSULE TWICE A DAY BY MOUTH)
     Route: 048
  16. VESICARE [Concomitant]
     Active Substance: SOLIFENACIN SUCCINATE
     Dosage: 5 MG, UNK
  17. LYRICA [Suspect]
     Active Substance: PREGABALIN
     Dosage: 150 MG, DAILY
  18. LYRICA [Suspect]
     Active Substance: PREGABALIN
     Dosage: 50 MG
  19. FIORICET [Concomitant]
     Active Substance: ACETAMINOPHEN\BUTALBITAL\CAFFEINE
     Dosage: UNK

REACTIONS (9)
  - Fatigue [Not Recovered/Not Resolved]
  - Arthritis [Not Recovered/Not Resolved]
  - Intentional dose omission [Unknown]
  - Increased appetite [Not Recovered/Not Resolved]
  - Somnolence [Not Recovered/Not Resolved]
  - Cheilitis [Recovering/Resolving]
  - Intentional product misuse [Not Recovered/Not Resolved]
  - Food craving [Not Recovered/Not Resolved]
  - Therapeutic product effect incomplete [Not Recovered/Not Resolved]

NARRATIVE: CASE EVENT DATE: 201905
